FAERS Safety Report 7740289-4 (Version None)
Quarter: 2011Q3

REPORT INFORMATION
  Report Type: 
  Country: None (occurrence: None)
  Receive Date: 20110909
  Receipt Date: 20110825
  Transmission Date: 20111222
  Serious: Yes (Other)
  Sender: FDA-Public Use
  Company Number: US-BAYER-2011-078827

PATIENT
  Sex: Female
  Weight: 60 kg

DRUGS (1)
  1. ASPIRIN [Suspect]
     Dosage: BOTTLE COUNT 50S
     Route: 048
     Dates: start: 20010101

REACTIONS (2)
  - DEAFNESS [None]
  - TINNITUS [None]
